FAERS Safety Report 11370368 (Version 2)
Quarter: 2016Q1

REPORT INFORMATION
  Report Type: Spontaneous
  Country: IT (occurrence: IT)
  Receive Date: 20150812
  Receipt Date: 20160112
  Transmission Date: 20160525
  Serious: Yes (Other)
  Sender: FDA-Public Use
  Company Number: IT-JNJFOC-20150806888

PATIENT
  Age: 53 Year
  Sex: Male
  Weight: 80 kg

DRUGS (1)
  1. REMICADE [Suspect]
     Active Substance: INFLIXIMAB
     Indication: ANKYLOSING SPONDYLITIS
     Dosage: 3-5 MG/KG/BODY WEIGHT 0,2,6 WEEKS AND EVERY 4 WEEKS THEREAFTER FOR A 5-YEAR PERIOD
     Route: 042
     Dates: start: 20070626, end: 20071031

REACTIONS (2)
  - Cardiac failure [Not Recovered/Not Resolved]
  - Myocardial infarction [Not Recovered/Not Resolved]
